FAERS Safety Report 26094754 (Version 1)
Quarter: 2025Q4

REPORT INFORMATION
  Report Type: Spontaneous
  Country: EU (occurrence: EU)
  Receive Date: 20251126
  Receipt Date: 20251126
  Transmission Date: 20260118
  Serious: Yes (Life-Threatening, Hospitalization)
  Sender: BIOGEN
  Company Number: None

PATIENT
  Age: 66 Year
  Sex: Male

DRUGS (1)
  1. TYSABRI [Suspect]
     Active Substance: NATALIZUMAB
     Indication: Multiple sclerosis
     Dosage: CONTINUED USE OF MEDICINAL PRODUCT
     Dates: start: 20080513

REACTIONS (5)
  - Malignant palate neoplasm [Recovered/Resolved]
  - Radiotherapy [Recovered/Resolved]
  - Neck dissection [Recovering/Resolving]
  - Metastases to lymph nodes [Recovered/Resolved]
  - Radiotherapy [Recovered/Resolved]

NARRATIVE: CASE EVENT DATE: 20210824
